FAERS Safety Report 9415260 (Version 1)
Quarter: 2013Q3

REPORT INFORMATION
  Report Type: Spontaneous
  Country: GR (occurrence: GR)
  Receive Date: 20130723
  Receipt Date: 20130723
  Transmission Date: 20140515
  Serious: Yes (Hospitalization)
  Sender: FDA-Public Use
  Company Number: GR-ROCHE-1251588

PATIENT
  Age: 64 Year
  Sex: Female

DRUGS (2)
  1. RITUXIMAB [Suspect]
     Indication: RHEUMATOID ARTHRITIS
     Dosage: 2 DOSES OF 1000 MG WITH 15 DAYS INTERVAL FROM DOSE TO DOSE, PER SESSION - SUCH SESSIONS WERE REPEATE
     Route: 065
  2. METHOTREXATE [Suspect]
     Indication: RHEUMATOID ARTHRITIS
     Dosage: 5 MG EVERY SATURDAY AND SUNDAY
     Route: 065

REACTIONS (4)
  - Hepatitis B [Recovering/Resolving]
  - Chronic hepatitis [Recovering/Resolving]
  - Hepatic fibrosis [Unknown]
  - Hepatic steatosis [Unknown]
